FAERS Safety Report 11713894 (Version 11)
Quarter: 2017Q2

REPORT INFORMATION
  Report Type: Spontaneous
  Country: US (occurrence: US)
  Receive Date: 20151109
  Receipt Date: 20170522
  Transmission Date: 20170829
  Serious: Yes (Congenital Anomaly, Other)
  Sender: FDA-Public Use
  Company Number: PHEH2015US022830

PATIENT
  Sex: Female
  Weight: 3.63 kg

DRUGS (2)
  1. ONDANSETRON [Suspect]
     Active Substance: ONDANSETRON
     Indication: FOETAL EXPOSURE DURING PREGNANCY
     Dosage: MOTHER^S DOSE FREQUENCY: PRN
     Route: 064
  2. ZOFRAN [Suspect]
     Active Substance: ONDANSETRON HYDROCHLORIDE
     Indication: FOETAL EXPOSURE DURING PREGNANCY
     Route: 064

REACTIONS (32)
  - Candida infection [Unknown]
  - Anhedonia [Unknown]
  - Gastrooesophageal reflux disease [Unknown]
  - Insomnia [Unknown]
  - Rhinorrhoea [Unknown]
  - Rhinitis [Unknown]
  - Otitis media chronic [Unknown]
  - Emotional distress [Unknown]
  - Injury [Unknown]
  - Wheezing [Not Recovered/Not Resolved]
  - Cough [Unknown]
  - Melanocytic naevus [Unknown]
  - Foetal exposure during pregnancy [Unknown]
  - Speech disorder [Unknown]
  - Pain [Unknown]
  - Decreased appetite [Unknown]
  - Asthma [Unknown]
  - Pharyngitis [Unknown]
  - Bronchiolitis [Unknown]
  - Viral upper respiratory tract infection [Recovering/Resolving]
  - Otorrhoea [Unknown]
  - Rhinitis allergic [Unknown]
  - Anxiety [Unknown]
  - Congenital anomaly [Unknown]
  - Dysphonia [Unknown]
  - Nasal congestion [Unknown]
  - Hypoacusis [Unknown]
  - Eustachian tube dysfunction [Unknown]
  - Cerumen impaction [Unknown]
  - Cleft palate [Unknown]
  - Eating disorder [Unknown]
  - Weight decreased [Unknown]
